FAERS Safety Report 7126359-2 (Version None)
Quarter: 2010Q4

REPORT INFORMATION
  Report Type: 
  Country: None (occurrence: None)
  Receive Date: 20101129
  Receipt Date: 20101123
  Transmission Date: 20110411
  Serious: Yes (Death)
  Sender: FDA-Public Use
  Company Number: TR-ELI_LILLY_AND_COMPANY-TR201011006136

PATIENT
  Age: 57 Year
  Sex: Male

DRUGS (2)
  1. HUMALOG MIX 75/25 [Suspect]
     Indication: DIABETES MELLITUS
     Dosage: UNK UNK, 2/D
     Route: 058
     Dates: end: 20101122
  2. HUMALOG MIX 75/25 [Suspect]
     Dosage: 8 U, EACH EVENING
     Route: 058
     Dates: end: 20101122

REACTIONS (1)
  - DEATH [None]
